FAERS Safety Report 6125837-2 (Version None)
Quarter: 2009Q1

REPORT INFORMATION
  Report Type: 
  Country: None (occurrence: None)
  Receive Date: 20090320
  Receipt Date: 20090310
  Transmission Date: 20090719
  Serious: Yes (Hospitalization)
  Sender: FDA-Public Use
  Company Number: US-BIOGENIDEC-2008BI005704

PATIENT
  Age: 59 Year
  Sex: Female

DRUGS (1)
  1. AVONEX [Suspect]
     Indication: MULTIPLE SCLEROSIS
     Route: 030
     Dates: start: 19980901

REACTIONS (5)
  - FACET JOINT SYNDROME [None]
  - INTERVERTEBRAL DISC DEGENERATION [None]
  - LUMBAR SPINAL STENOSIS [None]
  - MUSCULAR WEAKNESS [None]
  - RADICULOPATHY [None]
